FAERS Safety Report 5501467-8 (Version None)
Quarter: 2007Q4

REPORT INFORMATION
  Report Type: 
  Country: None (occurrence: None)
  Receive Date: 20071023
  Receipt Date: 20060921
  Transmission Date: 20080405
  Serious: Yes (Hospitalization, Other)
  Sender: FDA-Public Use
  Company Number: 30766

PATIENT
  Age: 55 Year
  Sex: Male

DRUGS (15)
  1. CYTARABINE [Suspect]
     Indication: CHRONIC LYMPHOCYTIC LEUKAEMIA
     Dosage: 1G/M2/IV
     Route: 042
     Dates: start: 20060811, end: 20060814
  2. VORICONAZOLE [Concomitant]
  3. DAPSONE [Concomitant]
  4. EFFEXOR [Concomitant]
  5. ATROPINE [Concomitant]
  6. MORPHINE SULFATE [Concomitant]
  7. PREDNISOLONE [Concomitant]
  8. QUININE SULFATE [Concomitant]
  9. TIMOLOL MALEATE [Concomitant]
  10. VALTREX [Concomitant]
  11. AUGMENTIN '250' [Concomitant]
  12. CALCIUM [Concomitant]
  13. PEPCID [Concomitant]
  14. PHENERGAN HCL [Concomitant]
  15. MAGNESIUM HYDROXIDE TAB [Concomitant]

REACTIONS (1)
  - FEBRILE NEUTROPENIA [None]
